FAERS Safety Report 8824089 (Version 1)
Quarter: 2012Q4

REPORT INFORMATION
  Report Type: 
  Country: IT (occurrence: IT)
  Receive Date: 20121003
  Receipt Date: 20121003
  Transmission Date: 20130627
  Serious: Yes (Hospitalization)
  Sender: FDA-Public Use
  Company Number: IT-PFIZER INC-2012235736

PATIENT
  Age: 57 Year
  Sex: Male

DRUGS (2)
  1. CISPLATIN [Suspect]
     Indication: LARGE CELL LUNG CANCER STAGE 0
     Dosage: 144 mg, cyclic
     Route: 042
     Dates: start: 20120816, end: 20120816
  2. PACLITAXEL [Concomitant]
     Dosage: UNK

REACTIONS (1)
  - Deep vein thrombosis [Recovering/Resolving]
